FAERS Safety Report 5058268-7 (Version None)
Quarter: 2006Q3

REPORT INFORMATION
  Report Type: 
  Country: None (occurrence: None)
  Receive Date: 20060721
  Receipt Date: 20051205
  Transmission Date: 20061208
  Serious: No
  Sender: FDA-Public Use
  Company Number: US-GLAXOSMITHKLINE-A0584680A

PATIENT
  Age: 65 Year
  Sex: Female

DRUGS (7)
  1. AVANDIA [Suspect]
     Dosage: 1TAB PER DAY
     Route: 048
     Dates: start: 20051101, end: 20051101
  2. CELEXA [Concomitant]
  3. CARDIZEM [Concomitant]
  4. WELLBUTRIN [Concomitant]
  5. NEXIUM [Concomitant]
  6. LEVSIN [Concomitant]
  7. DITROPAN [Concomitant]

REACTIONS (2)
  - NAUSEA [None]
  - VOMITING [None]
